FAERS Safety Report 6349609-9 (Version None)
Quarter: 2009Q3

REPORT INFORMATION
  Report Type: 
  Country: None (occurrence: None)
  Receive Date: 20090911
  Receipt Date: 20090903
  Transmission Date: 20100115
  Serious: Yes (Hospitalization, Disabling, Other)
  Sender: FDA-Public Use
  Company Number: FR-ABBOTT-09P-056-0595576-00

PATIENT
  Sex: Male
  Weight: 84 kg

DRUGS (36)
  1. NORVIR [Suspect]
     Indication: HIV INFECTION
     Route: 048
     Dates: start: 20080101
  2. VINBLASTINE SULFATE [Suspect]
     Indication: CHEMOTHERAPY
     Dates: start: 20090609, end: 20090609
  3. VINBLASTINE SULFATE [Suspect]
     Dates: start: 20090624, end: 20090624
  4. VINBLASTINE SULFATE [Suspect]
     Dates: start: 20090707, end: 20090707
  5. VINBLASTINE SULFATE [Suspect]
     Dates: start: 20090724, end: 20090724
  6. VINBLASTINE SULFATE [Suspect]
     Dates: start: 20090804, end: 20090804
  7. PREZISTA [Suspect]
     Indication: HIV INFECTION
     Route: 048
  8. EMEND [Suspect]
     Indication: DRUG USE FOR UNKNOWN INDICATION
     Route: 048
     Dates: start: 20090609, end: 20090609
  9. EMEND [Suspect]
     Dates: start: 20090624, end: 20090624
  10. EMEND [Suspect]
     Dates: start: 20090707, end: 20090707
  11. ZYVOXID [Suspect]
     Indication: DRUG USE FOR UNKNOWN INDICATION
     Route: 048
     Dates: start: 20090613, end: 20090731
  12. BLEOMYCIN [Concomitant]
     Indication: CHEMOTHERAPY
     Dosage: 20 MG (10MG/M2)
     Dates: start: 20090609, end: 20090609
  13. BLEOMYCIN [Concomitant]
     Dosage: 20 MG (10MG/M2)
     Dates: start: 20090624, end: 20090624
  14. BLEOMYCIN [Concomitant]
     Dosage: 20 MG (10MG/M2)
     Dates: start: 20090707, end: 20090707
  15. BLEOMYCIN [Concomitant]
     Dates: start: 20090724, end: 20090724
  16. BLEOMYCIN [Concomitant]
     Dates: start: 20090804, end: 20090804
  17. DOXORUBICIN HCL [Concomitant]
     Indication: CHEMOTHERAPY
     Dates: start: 20090609, end: 20090609
  18. DOXORUBICIN HCL [Concomitant]
     Dates: start: 20090624, end: 20090624
  19. DOXORUBICIN HCL [Concomitant]
     Dates: start: 20090707, end: 20090707
  20. DOXORUBICIN HCL [Concomitant]
     Dates: start: 20090724, end: 20090724
  21. DOXORUBICIN HCL [Concomitant]
     Dates: start: 20090804, end: 20090804
  22. DACARBAZIN [Concomitant]
     Indication: CHEMOTHERAPY
     Dates: start: 20090609, end: 20090609
  23. DACARBAZIN [Concomitant]
     Dates: start: 20090624, end: 20090624
  24. DACARBAZIN [Concomitant]
     Dates: start: 20090707, end: 20090707
  25. DACARBAZIN [Concomitant]
     Dates: start: 20090724, end: 20090724
  26. DACARBAZIN [Concomitant]
     Dates: start: 20090804, end: 20090804
  27. ZOPHREN [Concomitant]
     Indication: DRUG USE FOR UNKNOWN INDICATION
     Dates: start: 20090609, end: 20090609
  28. ZOPHREN [Concomitant]
     Dates: start: 20090624, end: 20090624
  29. ZOPHREN [Concomitant]
     Dates: start: 20090707, end: 20090707
  30. PRIMPERAN [Concomitant]
     Indication: DRUG USE FOR UNKNOWN INDICATION
     Dates: start: 20090609, end: 20090609
  31. PRIMPERAN [Concomitant]
     Dates: start: 20090624, end: 20090624
  32. PRIMPERAN [Concomitant]
     Dates: start: 20090707, end: 20090707
  33. VANCOMYCIN [Concomitant]
     Indication: DRUG USE FOR UNKNOWN INDICATION
     Dates: start: 20090613, end: 20090619
  34. TRUVADA [Concomitant]
     Indication: HIV INFECTION
     Dates: start: 20080101, end: 20090724
  35. KIVEXA [Concomitant]
     Indication: HIV INFECTION
     Dates: start: 20090724
  36. ETOPOSIDE [Concomitant]
     Indication: CHEMOTHERAPY
     Dates: start: 20090804

REACTIONS (4)
  - HISTIOCYTOSIS HAEMATOPHAGIC [None]
  - HODGKIN'S DISEASE [None]
  - NEUROPATHY PERIPHERAL [None]
  - PERIPHERAL MOTOR NEUROPATHY [None]
